FAERS Safety Report 7321566-8 (Version None)
Quarter: 2011Q1

REPORT INFORMATION
  Report Type: 
  Country: None (occurrence: None)
  Receive Date: 20110228
  Receipt Date: 20100512
  Transmission Date: 20110831
  Serious: No
  Sender: FDA-Public Use
  Company Number: A0859406A

PATIENT
  Sex: Female

DRUGS (1)
  1. VALTREX [Suspect]
     Indication: GENITAL HERPES
     Dosage: 1G PER DAY
     Route: 048
     Dates: start: 20080101

REACTIONS (21)
  - EYE PRURITUS [None]
  - LACRIMATION INCREASED [None]
  - CHEST PAIN [None]
  - NAUSEA [None]
  - OCULAR HYPERAEMIA [None]
  - RASH [None]
  - CHEST DISCOMFORT [None]
  - DISTURBANCE IN ATTENTION [None]
  - URTICARIA [None]
  - FORMICATION [None]
  - DEHYDRATION [None]
  - COUGH [None]
  - NERVOUSNESS [None]
  - INSOMNIA [None]
  - SNEEZING [None]
  - PRURITUS [None]
  - IMMUNE SYSTEM DISORDER [None]
  - THROAT IRRITATION [None]
  - FIBROMYALGIA [None]
  - DYSPHAGIA [None]
  - DERMATITIS [None]
